FAERS Safety Report 8464523-0 (Version None)
Quarter: 2012Q2

REPORT INFORMATION
  Report Type: 
  Country: None (occurrence: None)
  Receive Date: 20120620
  Receipt Date: 20120620
  Transmission Date: 20120825
  Serious: Yes (Other)
  Sender: FDA-Public Use
  Company Number: None

PATIENT
  Age: 51 Year

DRUGS (4)
  1. PROPRANOLOL [Concomitant]
  2. BENZTROPINE MESYLATE [Concomitant]
  3. LURASIDONE 80 MG - MANUFACTURED BY SUNOVION [Suspect]
     Indication: SCHIZOPHRENIA
     Dosage: 80 MG PO EACH EVENING
     Route: 048
     Dates: start: 20111128
  4. CITALOPRAM HYDROBROMIDE [Concomitant]

REACTIONS (3)
  - MYOCARDIAL INFARCTION [None]
  - EJECTION FRACTION DECREASED [None]
  - AKINESIA [None]
